FAERS Safety Report 13609301 (Version 1)
Quarter: 2017Q2

REPORT INFORMATION
  Report Type: Spontaneous
  Country: US (occurrence: US)
  Receive Date: 20170602
  Receipt Date: 20170602
  Transmission Date: 20170830
  Serious: Yes (Hospitalization)
  Sender: FDA-Public Use
  Company Number: US-ALKERMES INC.-ALK-2017-002140

PATIENT
  Age: 25 Year
  Sex: Male
  Weight: 82.99 kg

DRUGS (2)
  1. VIVITROL [Suspect]
     Active Substance: NALTREXONE
     Indication: DRUG USE DISORDER
     Dosage: 380 MG, QMO
     Route: 030
     Dates: start: 20160214, end: 201609
  2. CLONAZEPAM. [Concomitant]
     Active Substance: CLONAZEPAM
     Indication: PRODUCT USED FOR UNKNOWN INDICATION
     Dosage: UNK

REACTIONS (4)
  - Drug use disorder [Recovering/Resolving]
  - Alcohol use [Recovered/Resolved]
  - Malaise [Recovered/Resolved]
  - Ligament rupture [Unknown]

NARRATIVE: CASE EVENT DATE: 2016
